FAERS Safety Report 5017691-7 (Version None)
Quarter: 2006Q2

REPORT INFORMATION
  Report Type: 
  Country: None (occurrence: None)
  Receive Date: 20060525
  Receipt Date: 20060511
  Transmission Date: 20061013
  Serious: Yes (Hospitalization)
  Sender: FDA-Public Use
  Company Number: 2006S1003422

PATIENT
  Age: 39 Year
  Sex: Male
  Weight: 61 kg

DRUGS (10)
  1. FENTANYL TRANSDERMAL SYSTEM [Suspect]
     Indication: CANCER PAIN
     Dosage: 50 UG/HR;Q3D;TRANS; 50 UG/HR;QOD;TRANS
     Route: 062
     Dates: start: 20060101, end: 20060201
  2. FENTANYL TRANSDERMAL SYSTEM [Suspect]
     Indication: SMALL INTESTINE CARCINOMA
     Dosage: 50 UG/HR;Q3D;TRANS; 50 UG/HR;QOD;TRANS
     Route: 062
     Dates: start: 20060101, end: 20060201
  3. FENTANYL TRANSDERMAL SYSTEM [Suspect]
     Indication: CANCER PAIN
     Dosage: 50 UG/HR;Q3D;TRANS; 50 UG/HR;QOD;TRANS
     Route: 062
     Dates: start: 20060201
  4. FENTANYL TRANSDERMAL SYSTEM [Suspect]
     Indication: SMALL INTESTINE CARCINOMA
     Dosage: 50 UG/HR;Q3D;TRANS; 50 UG/HR;QOD;TRANS
     Route: 062
     Dates: start: 20060201
  5. FENTANYL TRANSDERMAL SYSTEM [Suspect]
     Indication: CANCER PAIN
     Dosage: 200 UG/HR;Q3D;TRANS; 200 UG/HR;QOD;TRANS
     Route: 062
     Dates: start: 20060101, end: 20060201
  6. FENTANYL TRANSDERMAL SYSTEM [Suspect]
     Indication: CANCER PAIN
     Dosage: 200 UG/HR;Q3D;TRANS; 200 UG/HR;QOD;TRANS
     Route: 062
     Dates: start: 20060201
  7. PREDNISONE [Concomitant]
  8. OXYCODONE (60 MG) [Suspect]
     Indication: CANCER PAIN
     Dosage: 60 MG;PRN;ORAL
     Route: 048
     Dates: start: 20060101
  9. METHADONE HCL [Suspect]
     Indication: CANCER PAIN
     Dosage: 60 MG;Q8H;ORAL; 30 MG;PRN;ORAL
     Route: 048
     Dates: start: 20060404
  10. METHADONE HCL [Suspect]
     Indication: CANCER PAIN
     Dosage: 60 MG;Q8H;ORAL; 30 MG;PRN;ORAL
     Route: 048
     Dates: start: 20060404

REACTIONS (7)
  - ARTHRALGIA [None]
  - BONE CANCER METASTATIC [None]
  - DRUG EFFECT DECREASED [None]
  - DRUG THERAPY CHANGED [None]
  - INADEQUATE ANALGESIA [None]
  - PAIN [None]
  - PHARMACEUTICAL PRODUCT COMPLAINT [None]
